FAERS Safety Report 15826671 (Version 2)
Quarter: 2019Q1

REPORT INFORMATION
  Report Type: Spontaneous
  Country: IL (occurrence: IL)
  Receive Date: 20190115
  Receipt Date: 20190119
  Transmission Date: 20190417
  Serious: Yes (Hospitalization, Other)
  Sender: FDA-Public Use
  Company Number: IL-AMGEN-ISRSP2018170089

PATIENT
  Age: 80 Year
  Sex: Female
  Weight: 49.6 kg

DRUGS (5)
  1. PROLIA [Suspect]
     Active Substance: DENOSUMAB
     Dosage: 60 MG, Q6MO
     Route: 065
     Dates: start: 201512, end: 201612
  2. PROLIA [Suspect]
     Active Substance: DENOSUMAB
     Indication: OSTEOPOROSIS
     Dosage: 60 MG, Q6MO
     Route: 065
     Dates: start: 201212, end: 201406
  3. HYDROCHLOROTHIAZIDE. [Concomitant]
     Active Substance: HYDROCHLOROTHIAZIDE
     Indication: HYPERCALCIURIA
     Dosage: 25 MG, QD
  4. SIMVASTATIN. [Concomitant]
     Active Substance: SIMVASTATIN
     Indication: HYPERCHOLESTEROLAEMIA
     Dosage: 20 MG, QD
     Route: 065
  5. CALCIUM + VITAMIN D [Concomitant]
     Active Substance: CALCIUM\VITAMIN D
     Indication: OSTEOPOROSIS
     Dosage: 1000+600MG, QD

REACTIONS (10)
  - Sarcopenia [Unknown]
  - Spinal compression fracture [Unknown]
  - Body height decreased [Unknown]
  - Weight decreased [Unknown]
  - Back pain [Unknown]
  - Muscle atrophy [Unknown]
  - Hip fracture [Unknown]
  - Femoral neck fracture [Unknown]
  - Hypoproteinaemia [Unknown]
  - Depression [Unknown]

NARRATIVE: CASE EVENT DATE: 2017
